FAERS Safety Report 13050139 (Version 4)
Quarter: 2017Q1

REPORT INFORMATION
  Report Type: Report from Study
  Country: BJ (occurrence: BJ)
  Receive Date: 20161221
  Receipt Date: 20170116
  Transmission Date: 20170428
  Serious: Yes (Death, Hospitalization)
  Sender: FDA-Public Use
  Company Number: PHHY2016BJ175147

PATIENT
  Age: 40 Year
  Sex: Male
  Weight: 65 kg

DRUGS (1)
  1. GLIVEC [Suspect]
     Active Substance: IMATINIB MESYLATE
     Indication: CHRONIC MYELOID LEUKAEMIA
     Dosage: 600 MG, QD
     Route: 065

REACTIONS (6)
  - Pneumonia [Fatal]
  - Therapy non-responder [Unknown]
  - Drug resistance [Unknown]
  - Respiratory distress [Unknown]
  - White blood cell count increased [Unknown]
  - Haemoglobin decreased [Unknown]

NARRATIVE: CASE EVENT DATE: 20161012
